FAERS Safety Report 9341120 (Version 1)
Quarter: 2013Q2

REPORT INFORMATION
  Report Type: Report from Study
  Country: JP (occurrence: JP)
  Receive Date: 20130611
  Receipt Date: 20130611
  Transmission Date: 20140414
  Serious: Yes (Hospitalization)
  Sender: FDA-Public Use
  Company Number: JP-ABBOTT-13X-087-1097468-00

PATIENT
  Age: 65 Year
  Sex: Female

DRUGS (3)
  1. LIPACREON [Suspect]
     Indication: PANCREATIC INSUFFICIENCY
     Route: 048
     Dates: start: 20120809
  2. FAMOTIDINE [Concomitant]
     Indication: ANASTOMOTIC ULCER
  3. FAMOTIDINE [Concomitant]
     Indication: PROPHYLAXIS

REACTIONS (1)
  - Gastric ulcer haemorrhage [Recovered/Resolved]
